FAERS Safety Report 8601219-6 (Version None)
Quarter: 2012Q3

REPORT INFORMATION
  Report Type: 
  Country: None (occurrence: None)
  Receive Date: 20120817
  Receipt Date: 20120808
  Transmission Date: 20120928
  Serious: Yes (Death)
  Sender: FDA-Public Use
  Company Number: PHEH2012US015629

PATIENT
  Sex: Female

DRUGS (15)
  1. LEXAPRO [Concomitant]
  2. PRILOSEC [Concomitant]
  3. ENABLEX [Concomitant]
  4. CARBIDOPA + LEVODOPA [Concomitant]
  5. MULTI-VITAMINS [Concomitant]
  6. ASPIRIN [Concomitant]
  7. CALCIUM CARBONATE [Concomitant]
  8. TASIGNA [Suspect]
     Indication: CHRONIC MYELOID LEUKAEMIA
     Dosage: 300 MG, BID
     Route: 048
     Dates: start: 20100823
  9. COLACE [Concomitant]
  10. LORAZEPAM [Concomitant]
  11. TOPIRAMATE [Concomitant]
  12. HYDROCODONE BITARTRATE [Concomitant]
  13. PROPRANOLOL HYDROCHLORIDE [Concomitant]
  14. VAGIFEM [Concomitant]
  15. LEVOTHYROXINE SODIUM [Concomitant]

REACTIONS (1)
  - HOMICIDE [None]
